FAERS Safety Report 4330237-1 (Version None)
Quarter: 2004Q1

REPORT INFORMATION
  Report Type: 
  Country: None (occurrence: None)
  Receive Date: 20040329
  Receipt Date: 20040312
  Transmission Date: 20041129
  Serious: Yes (Life-Threatening, Hospitalization)
  Sender: FDA-Public Use
  Company Number: 2004017563

PATIENT
  Age: 71 Year
  Sex: Female

DRUGS (4)
  1. SERTRALINE HCL [Suspect]
     Indication: DEPRESSION
     Dosage: 100 MG, ORAL
     Route: 048
     Dates: start: 20031204, end: 20040107
  2. CELECOXIB (CELECOXIB) [Suspect]
     Indication: OSTEOARTHRITIS
     Dosage: 400 MG (BID), ORAL
     Route: 048
     Dates: start: 20020601, end: 20040101
  3. AMOXICILLIN [Concomitant]
  4. FLUOXETINE [Concomitant]

REACTIONS (4)
  - GASTRIC ULCER [None]
  - HAEMATEMESIS [None]
  - HELICOBACTER INFECTION [None]
  - MELAENA [None]
